FAERS Safety Report 5916795-1 (Version None)
Quarter: 2008Q3

REPORT INFORMATION
  Report Type: 
  Country: None (occurrence: None)
  Receive Date: 20080909
  Receipt Date: 20071002
  Transmission Date: 20090109
  Serious: Yes (Life-Threatening, Hospitalization)
  Sender: FDA-Public Use
  Company Number: 163-20785-07030360

PATIENT
  Age: 9 Year
  Sex: Male
  Weight: 19 kg

DRUGS (8)
  1. THALOMID [Suspect]
     Indication: NEUROBLASTOMA
     Dosage: 200 MG, 1 IN 1 D, ORAL
     Route: 048
     Dates: start: 20061127, end: 20070411
  2. ETOPOSIDE [Suspect]
     Indication: NEUROBLASTOMA
     Dosage: 28 MG, QD, ORAL ; 28 MG
     Route: 048
     Dates: start: 20070327, end: 20070410
  3. ETOPOSIDE [Suspect]
     Indication: NEUROBLASTOMA
     Dosage: 28 MG, QD, ORAL ; 28 MG
     Route: 048
     Dates: start: 20061127
  4. CYCLOPHOSPHAMIDE [Suspect]
     Indication: NEUROBLASTOMA
     Dosage: 50 MG, QD, ORAL
     Route: 048
     Dates: start: 20061127
  5. FENOFIBRATE [Suspect]
     Indication: NEUROBLASTOMA
     Dosage: 48 MG
     Dates: start: 20061127, end: 20070410
  6. CELEBREX [Suspect]
     Indication: NEUROBLASTOMA
     Dosage: 100 MG
     Dates: start: 20061127, end: 20070410
  7. ARANESP [Concomitant]
  8. BLOOD(BLOOD CELLS, PACKED HUMAN) [Concomitant]

REACTIONS (6)
  - DISEASE PROGRESSION [None]
  - NEUTROPHIL COUNT DECREASED [None]
  - PNEUMONIA [None]
  - PYREXIA [None]
  - WHEEZING [None]
  - WHITE BLOOD CELL COUNT DECREASED [None]
